FAERS Safety Report 11647931 (Version 2)
Quarter: 2015Q4

REPORT INFORMATION
  Report Type: Spontaneous
  Country: US (occurrence: US)
  Receive Date: 20151021
  Receipt Date: 20151203
  Transmission Date: 20160304
  Serious: Yes (Death, Hospitalization, Other)
  Sender: FDA-Public Use
  Company Number: US-WATSON-2015-22622

PATIENT
  Age: 63 Year
  Sex: Male

DRUGS (2)
  1. DEXAMETHASONE (WATSON LABORATORIES) [Suspect]
     Active Substance: DEXAMETHASONE
     Indication: HYPOTHYROIDISM
     Dosage: 6 MG, UNKNOWN
     Route: 065
  2. DEXAMETHASONE (WATSON LABORATORIES) [Suspect]
     Active Substance: DEXAMETHASONE
     Dosage: 0.75 MG, DAILY
     Route: 065

REACTIONS (2)
  - Septic shock [Fatal]
  - Pneumocystis jirovecii pneumonia [Fatal]
